FAERS Safety Report 7325650-4 (Version None)
Quarter: 2011Q1

REPORT INFORMATION
  Report Type: 
  Country: None (occurrence: None)
  Receive Date: 20110216
  Receipt Date: 20110207
  Transmission Date: 20110831
  Serious: Yes (Hospitalization)
  Sender: FDA-Public Use
  Company Number: WSDF_00742

PATIENT
  Sex: Male
  Weight: 95.2554 kg

DRUGS (9)
  1. FOLIC ACID [Concomitant]
  2. PREDNISONE [Concomitant]
  3. INSULIN [Concomitant]
  4. LEXAPRO [Concomitant]
  5. WINRHO SDF LIQUID [Suspect]
     Indication: IDIOPATHIC THROMBOCYTOPENIC PURPURA
     Dosage: SEE IMAGE
     Route: 042
     Dates: start: 20080518, end: 20080518
  6. WINRHO SDF LIQUID [Suspect]
     Indication: IDIOPATHIC THROMBOCYTOPENIC PURPURA
     Dosage: SEE IMAGE
     Route: 042
     Dates: start: 20080519, end: 20080519
  7. PRANDIN [Concomitant]
  8. ACTOS [Concomitant]
  9. GLUCOPHAGE [Concomitant]

REACTIONS (2)
  - HAEMOLYTIC ANAEMIA [None]
  - UNDERDOSE [None]
